FAERS Safety Report 22676609 (Version 2)
Quarter: 2023Q4

REPORT INFORMATION
  Report Type: Spontaneous
  Country: JP (occurrence: JP)
  Receive Date: 20230706
  Receipt Date: 20231031
  Transmission Date: 20240110
  Serious: Yes (Death, Life-Threatening, Hospitalization)
  Sender: FDA-Public Use
  Company Number: JP-MTPC-MTPC2023-0003709AA

PATIENT
  Sex: Male

DRUGS (8)
  1. REMICADE [Suspect]
     Active Substance: INFLIXIMAB
     Indication: Colitis ulcerative
     Dosage: 240 MILLIGRAM, QD
     Route: 041
     Dates: start: 20200720, end: 20200720
  2. REMICADE [Suspect]
     Active Substance: INFLIXIMAB
     Dosage: 240 MILLIGRAM, QD
     Route: 041
     Dates: start: 20200731, end: 20200731
  3. NEXIUM [Concomitant]
     Active Substance: ESOMEPRAZOLE MAGNESIUM
     Dosage: 20 MILLIGRAM, QD
     Route: 048
     Dates: start: 20200423
  4. ALLOPURINOL [Concomitant]
     Active Substance: ALLOPURINOL
     Dosage: 50 MILLIGRAM, QD
     Route: 048
     Dates: start: 20200522, end: 20200728
  5. MERCAPTOPURINE [Concomitant]
     Active Substance: MERCAPTOPURINE
     Dosage: 20 MILLIGRAM, QD
     Route: 065
     Dates: start: 20200724, end: 20200728
  6. ASPIRIN [Concomitant]
     Active Substance: ASPIRIN
     Dosage: 100 MILLIGRAM, QD
     Route: 048
  7. BIO-THREE [Concomitant]
     Active Substance: HERBALS
     Dosage: 3 DOSAGE FORM, QD
     Route: 048
  8. TAMSULOSIN HYDROCHLORIDE [Concomitant]
     Active Substance: TAMSULOSIN HYDROCHLORIDE
     Dosage: 0.2 MILLIGRAM, QD
     Route: 048

REACTIONS (3)
  - Pneumonia pseudomonal [Fatal]
  - Septic shock [Recovering/Resolving]
  - Cytomegalovirus viraemia [Recovering/Resolving]

NARRATIVE: CASE EVENT DATE: 20200804
